FAERS Safety Report 13656110 (Version 1)
Quarter: 2017Q2

REPORT INFORMATION
  Report Type: Report from Study
  Country: US (occurrence: US)
  Receive Date: 20170615
  Receipt Date: 20170615
  Transmission Date: 20170830
  Serious: Yes (Death)
  Sender: FDA-Public Use
  Company Number: US-TORRENT-00002954

PATIENT
  Age: 42 Year
  Sex: Male

DRUGS (5)
  1. VERAPAMIL [Suspect]
     Active Substance: VERAPAMIL HYDROCHLORIDE
  2. PROMETHAZINE [Suspect]
     Active Substance: PROMETHAZINE\PROMETHAZINE HYDROCHLORIDE
  3. CITALOPRAM [Suspect]
     Active Substance: CITALOPRAM HYDROBROMIDE
  4. AMLODIPINE [Suspect]
     Active Substance: AMLODIPINE BESYLATE
  5. ALCOHOL. [Suspect]
     Active Substance: ALCOHOL

REACTIONS (2)
  - Toxicity to various agents [Fatal]
  - Completed suicide [Fatal]
